FAERS Safety Report 4792591-6 (Version None)
Quarter: 2005Q4

REPORT INFORMATION
  Report Type: 
  Country: None (occurrence: None)
  Receive Date: 20051010
  Receipt Date: 20051004
  Transmission Date: 20060501
  Serious: Yes (Hospitalization)
  Sender: FDA-Public Use
  Company Number: US-MERCK-0510USA03293

PATIENT
  Age: 84 Year
  Sex: Female

DRUGS (1)
  1. PRINIVIL [Suspect]
     Indication: HYPERTENSION
     Route: 048

REACTIONS (3)
  - ATRIAL FIBRILLATION [None]
  - HAEMOGLOBIN DECREASED [None]
  - SERUM FERRITIN DECREASED [None]
